FAERS Safety Report 13839052 (Version 1)
Quarter: 2017Q3

REPORT INFORMATION
  Report Type: Spontaneous
  Country: US (occurrence: US)
  Receive Date: 20170805
  Receipt Date: 20170805
  Transmission Date: 20171127
  Serious: Yes (Life-Threatening, Hospitalization, Other)
  Sender: FDA-Public Use
  Company Number: None

PATIENT
  Age: 42 Year
  Sex: Female
  Weight: 67.5 kg

DRUGS (2)
  1. SYNTHROID [Concomitant]
     Active Substance: LEVOTHYROXINE SODIUM
  2. LEVAQUIN [Suspect]
     Active Substance: LEVOFLOXACIN
     Indication: PNEUMONIA
     Dosage: ?          QUANTITY:1 TABLET(S);?
     Route: 048
     Dates: start: 19970908

REACTIONS (8)
  - Anaphylactic shock [None]
  - Diarrhoea [None]
  - Vomiting [None]
  - Paraesthesia oral [None]
  - Genital paraesthesia [None]
  - Paraesthesia [None]
  - Respiratory rate decreased [None]
  - Poor venous access [None]

NARRATIVE: CASE EVENT DATE: 19970908
